FAERS Safety Report 4512742-8 (Version None)
Quarter: 2004Q4

REPORT INFORMATION
  Report Type: 
  Country: None (occurrence: None)
  Receive Date: 20040928
  Receipt Date: 20040623
  Transmission Date: 20050328
  Serious: No
  Sender: FDA-Public Use
  Company Number: 04P-163-0264659-00

PATIENT
  Age: 61 Year
  Sex: Female
  Weight: 77.1115 kg

DRUGS (7)
  1. HUMIRA [Suspect]
     Indication: RHEUMATOID ARTHRITIS
     Dosage: 40 MG 1 IN 2 WK SUBCUTANEOUS
     Route: 058
     Dates: start: 20031201
  2. PREDNISONE [Concomitant]
  3. METHOTREXATE [Concomitant]
  4. FOLIC ACID [Concomitant]
  5. ATORVASTATIN CALCIUM [Concomitant]
  6. VERAPAMIL [Concomitant]
  7. ERGOCALCIFEROL [Concomitant]

REACTIONS (2)
  - INJECTION SITE BURNING [None]
  - INJECTION SITE ERYTHEMA [None]
